FAERS Safety Report 8333388-X (Version None)
Quarter: 2012Q2

REPORT INFORMATION
  Report Type: 
  Country: None (occurrence: None)
  Receive Date: 20120503
  Receipt Date: 20120426
  Transmission Date: 20120825
  Serious: Yes (Hospitalization)
  Sender: FDA-Public Use
  Company Number: US-BAYER-2011-067615

PATIENT
  Age: 21 Year
  Sex: Female
  Weight: 86.168 kg

DRUGS (3)
  1. YAZ [Suspect]
     Indication: HIRSUTISM
     Dosage: UNK
     Dates: start: 20090712, end: 20090715
  2. SPIRONOLACTONE [Concomitant]
     Dosage: UNK
     Dates: start: 20090708, end: 20090715
  3. SPIRONOLACTONE [Concomitant]
     Dosage: 50 MG, QD
     Dates: start: 20090708, end: 20090715

REACTIONS (7)
  - ANXIETY [None]
  - COMPLICATED MIGRAINE [None]
  - CEREBROVASCULAR ACCIDENT [None]
  - PAIN [None]
  - TRANSIENT ISCHAEMIC ATTACK [None]
  - INJURY [None]
  - ANHEDONIA [None]
